FAERS Safety Report 14924649 (Version 1)
Quarter: 2018Q2

REPORT INFORMATION
  Report Type: Spontaneous
  Country: US (occurrence: US)
  Receive Date: 20180503
  Receipt Date: 20180503
  Transmission Date: 20180711
  Serious: Yes (Hospitalization)
  Sender: FDA-Public Use
  Company Number: None

PATIENT
  Age: 59 Year
  Sex: Male

DRUGS (7)
  1. CRESTOR [Concomitant]
     Active Substance: ROSUVASTATIN CALCIUM
  2. HYDROXYCHOLOROQUINE [Concomitant]
  3. XARELTO [Concomitant]
     Active Substance: RIVAROXABAN
  4. PREDNIS [Concomitant]
  5. PREVACID [Concomitant]
     Active Substance: LANSOPRAZOLE
  6. HUMIRA [Suspect]
     Active Substance: ADALIMUMAB
     Indication: RHEUMATOID ARTHRITIS
     Route: 058
     Dates: start: 20171102
  7. ALPRAZOLAM. [Concomitant]
     Active Substance: ALPRAZOLAM

REACTIONS (2)
  - Drug dose omission [None]
  - Rheumatoid arthritis [None]

NARRATIVE: CASE EVENT DATE: 2018
